FAERS Safety Report 9647996 (Version 2)
Quarter: 2013Q4

REPORT INFORMATION
  Report Type: Spontaneous
  Country: US (occurrence: US)
  Receive Date: 20131028
  Receipt Date: 20131125
  Transmission Date: 20140711
  Serious: No
  Sender: FDA-Public Use
  Company Number: US-PFIZER INC-2013306348

PATIENT
  Sex: Male

DRUGS (2)
  1. LYRICA [Suspect]
     Indication: GASTROINTESTINAL DISORDER
     Dosage: 50 MG, 2X/DAY
     Dates: start: 201311, end: 20131121
  2. LINZESS [Suspect]
     Dosage: UNK

REACTIONS (3)
  - Off label use [Unknown]
  - Tremor [Unknown]
  - Abdominal pain upper [Unknown]
